FAERS Safety Report 6692539-3 (Version None)
Quarter: 2010Q2

REPORT INFORMATION
  Report Type: 
  Country: None (occurrence: None)
  Receive Date: 20100419
  Receipt Date: 20100406
  Transmission Date: 20101027
  Serious: Yes (Hospitalization)
  Sender: FDA-Public Use
  Company Number: 2010AL000891

PATIENT
  Age: 63 Year
  Sex: Male

DRUGS (6)
  1. BICALUTAMIDE [Suspect]
     Indication: PROSTATE CANCER
     Dosage: 50 MG; QD; PO
     Route: 048
     Dates: start: 20090429, end: 20091210
  2. TAXOTERE [Concomitant]
  3. MOXALOLE [Concomitant]
  4. MALFIN [Concomitant]
  5. UNIKALK PLUS [Concomitant]
  6. PINEX /CAN/ [Concomitant]

REACTIONS (7)
  - BLOOD IRON INCREASED [None]
  - CYTOMEGALOVIRUS TEST POSITIVE [None]
  - EPSTEIN-BARR VIRUS ANTIGEN POSITIVE [None]
  - HEPATITIS CHOLESTATIC [None]
  - HEPATITIS TOXIC [None]
  - INTERNATIONAL NORMALISED RATIO DECREASED [None]
  - SERUM FERRITIN INCREASED [None]
